FAERS Safety Report 9750136 (Version 1)
Quarter: 2013Q4

REPORT INFORMATION
  Report Type: Spontaneous
  Country: GR (occurrence: GR)
  Receive Date: 20131212
  Receipt Date: 20131212
  Transmission Date: 20140711
  Serious: No
  Sender: FDA-Public Use
  Company Number: GR-GILEAD-GR-CVT-090801

PATIENT
  Sex: Female

DRUGS (3)
  1. RANEXA [Suspect]
     Indication: ANGINA PECTORIS
  2. RANEXA [Suspect]
  3. RANEXA [Suspect]

REACTIONS (1)
  - Malaise [Recovered/Resolved]
